FAERS Safety Report 7173412-3 (Version None)
Quarter: 2010Q4

REPORT INFORMATION
  Report Type: 
  Country: None (occurrence: None)
  Receive Date: 20101202
  Receipt Date: 20101122
  Transmission Date: 20110411
  Serious: Yes (Hospitalization, Other)
  Sender: FDA-Public Use
  Company Number: 021672

PATIENT
  Sex: Male

DRUGS (14)
  1. ZAROXOLYN [Suspect]
     Indication: CARDIAC FAILURE
     Dosage: (10 MG 1X/WEEK ORAL), (2.5 MG 1X/WEEK ORAL)
     Route: 048
     Dates: start: 20100401
  2. FURIX (FURIX) [Suspect]
     Indication: CARDIAC FAILURE
     Dosage: (120 MG ORAL)
     Route: 048
  3. ALVEDON [Concomitant]
  4. ATACAND [Concomitant]
  5. ACTRAPID /00646001/ [Concomitant]
  6. INSULATARD /00646001/ [Concomitant]
  7. LYRICA [Concomitant]
  8. SIMVASTATIN [Concomitant]
  9. MIRTAZAPIN [Concomitant]
  10. METOPROLOL [Concomitant]
  11. WARAN [Concomitant]
  12. DURAPREDNISOLON [Concomitant]
  13. HERACILLIN /00239102/ [Concomitant]
  14. ALLOPURINOL [Concomitant]

REACTIONS (5)
  - BLOOD PRESSURE DECREASED [None]
  - DEHYDRATION [None]
  - DIZZINESS [None]
  - PRESYNCOPE [None]
  - SKIN TURGOR DECREASED [None]
